FAERS Safety Report 5608495-2 (Version None)
Quarter: 2008Q1

REPORT INFORMATION
  Report Type: 
  Country: None (occurrence: None)
  Receive Date: 20080130
  Receipt Date: 20080121
  Transmission Date: 20080703
  Serious: Yes (Hospitalization)
  Sender: FDA-Public Use
  Company Number: ES-GENENTECH-254840

PATIENT
  Sex: Female
  Weight: 67 kg

DRUGS (8)
  1. BEVACIZUMAB [Suspect]
     Indication: COLORECTAL CANCER
     Dosage: 502 MG, Q3W
     Route: 042
     Dates: start: 20071017
  2. OXALIPLATIN [Suspect]
     Indication: COLORECTAL CANCER
     Dosage: 211 MG, Q3W
     Route: 042
     Dates: start: 20071017
  3. CAPECITABINE [Suspect]
     Indication: COLORECTAL CANCER
     Dosage: 3300 MG, QD
     Route: 048
     Dates: start: 20071017
  4. ONDANSETRON [Concomitant]
     Indication: DRUG USE FOR UNKNOWN INDICATION
     Dates: start: 20071017
  5. DOMPERIDONE [Concomitant]
     Indication: DRUG USE FOR UNKNOWN INDICATION
     Dates: start: 20071017
  6. OMEPRAZOLE [Concomitant]
     Indication: DRUG USE FOR UNKNOWN INDICATION
     Dates: start: 20071017
  7. ENALAPRIL [Concomitant]
     Indication: DRUG USE FOR UNKNOWN INDICATION
  8. ADOLONTA [Concomitant]
     Indication: DRUG USE FOR UNKNOWN INDICATION

REACTIONS (1)
  - HYPERSENSITIVITY [None]
